FAERS Safety Report 15371931 (Version 2)
Quarter: 2018Q3

REPORT INFORMATION
  Report Type: Report from Study
  Country: US (occurrence: US)
  Receive Date: 20180911
  Receipt Date: 20180926
  Transmission Date: 20181010
  Serious: Yes (Hospitalization, Other)
  Sender: FDA-Public Use
  Company Number: US-GILEAD-2018-0361625

PATIENT
  Age: 24 Year
  Sex: Male

DRUGS (2)
  1. AZTREONAM LYSINE [Suspect]
     Active Substance: AZTREONAM LYSINE
     Indication: PSEUDOMONAS INFECTION
  2. AZTREONAM LYSINE [Suspect]
     Active Substance: AZTREONAM LYSINE
     Indication: CYSTIC FIBROSIS
     Dosage: 1 DF, TID EVERY MONTH/ NEBULIZE 3 TIMES DAILY EVERY OTHER MONTH (FOLLOW MIXING INSTRUCTIONS)
     Route: 055
     Dates: start: 20150615

REACTIONS (3)
  - Off label use [Not Recovered/Not Resolved]
  - Cystic fibrosis respiratory infection suppression [Recovered/Resolved]
  - Condition aggravated [Recovered/Resolved]

NARRATIVE: CASE EVENT DATE: 20150615
